FAERS Safety Report 19655206 (Version 1)
Quarter: 2021Q3

REPORT INFORMATION
  Report Type: Spontaneous
  Country: US (occurrence: US)
  Receive Date: 20210803
  Receipt Date: 20210803
  Transmission Date: 20211014
  Serious: Yes (Death)
  Sender: FDA-Public Use
  Company Number: None

PATIENT
  Age: 83 Year
  Sex: Male

DRUGS (1)
  1. IMATINIB MES TAB 100MG [Suspect]
     Active Substance: IMATINIB MESYLATE
     Indication: PHILADELPHIA POSITIVE CHRONIC MYELOID LEUKAEMIA
     Route: 048
     Dates: start: 2017, end: 20210704

REACTIONS (1)
  - Death [None]

NARRATIVE: CASE EVENT DATE: 20210704
